FAERS Safety Report 23056432 (Version 1)
Quarter: 2023Q4

REPORT INFORMATION
  Report Type: Spontaneous
  Country: BR (occurrence: BR)
  Receive Date: 20231011
  Receipt Date: 20231011
  Transmission Date: 20240109
  Serious: Yes (Other)
  Sender: FDA-Public Use
  Company Number: BR-TAKEDA-2023TUS097478

PATIENT
  Sex: Female
  Weight: 66.7 kg

DRUGS (3)
  1. MESALAMINE [Suspect]
     Active Substance: MESALAMINE
     Indication: Product used for unknown indication
     Dosage: UNK
     Route: 065
  2. MESALAMINE [Suspect]
     Active Substance: MESALAMINE
     Indication: Diverticulitis
     Dosage: 800 MILLIGRAM, Q12H
     Route: 065
  3. Fiber mais [Concomitant]
     Dosage: UNK

REACTIONS (8)
  - Intestinal perforation [Unknown]
  - Product residue present [Unknown]
  - Malabsorption [Unknown]
  - Poor quality product administered [Unknown]
  - Inflammation [Unknown]
  - Gastrooesophageal reflux disease [Unknown]
  - Fear [Unknown]
  - Hypertension [Unknown]
